FAERS Safety Report 21244463 (Version 1)
Quarter: 2022Q3

REPORT INFORMATION
  Report Type: Spontaneous
  Country: US (occurrence: US)
  Receive Date: 20220823
  Receipt Date: 20220823
  Transmission Date: 20221027
  Serious: No
  Sender: FDA-Public Use
  Company Number: US-PERRIGO-21US032821

PATIENT
  Age: 48 Year
  Sex: Female
  Weight: 92.971 kg

DRUGS (1)
  1. NICOTINE POLACRILEX [Suspect]
     Active Substance: NICOTINE
     Indication: Smoking cessation therapy
     Dosage: 4 MG, EVERY 2 TO 3 HOURS
     Route: 002
     Dates: start: 20211217, end: 20211219

REACTIONS (2)
  - Tongue ulceration [Recovering/Resolving]
  - Tongue discomfort [Recovering/Resolving]

NARRATIVE: CASE EVENT DATE: 20211219
